FAERS Safety Report 5618866-6 (Version None)
Quarter: 2008Q1

REPORT INFORMATION
  Report Type: 
  Country: None (occurrence: None)
  Receive Date: 20080207
  Receipt Date: 20080204
  Transmission Date: 20080703
  Serious: Yes (Other)
  Sender: FDA-Public Use
  Company Number: DE-PFIZER INC-2007104479

PATIENT
  Age: 38 Year
  Sex: Female
  Weight: 70 kg

DRUGS (2)
  1. DOSTINEX [Suspect]
     Indication: PITUITARY TUMOUR BENIGN
     Route: 048
  2. PRIMOSISTON [Suspect]
     Indication: GENITAL HAEMORRHAGE
     Route: 048
     Dates: start: 20071126, end: 20071202

REACTIONS (8)
  - ANAEMIA [None]
  - ANXIETY [None]
  - ENDOCRINE DISORDER [None]
  - ENDOMETRIAL HYPERTROPHY [None]
  - MENSTRUATION DELAYED [None]
  - MENSTRUATION IRREGULAR [None]
  - OVARIAN CYST [None]
  - VAGINAL HAEMORRHAGE [None]
